FAERS Safety Report 15328537 (Version 1)
Quarter: 2018Q3

REPORT INFORMATION
  Report Type: Spontaneous
  Country: US (occurrence: US)
  Receive Date: 20180829
  Receipt Date: 20180829
  Transmission Date: 20181010
  Serious: No
  Sender: FDA-Public Use
  Company Number: US-JNJFOC-20180818307

PATIENT
  Age: 74 Year
  Sex: Male
  Weight: 74.84 kg

DRUGS (2)
  1. VISINE ORIGINAL REDNESS RELIEF [Suspect]
     Active Substance: TETRAHYDROZOLINE HYDROCHLORIDE
     Indication: PRODUCT USED FOR UNKNOWN INDICATION
     Route: 065
  2. VISINE ORIGINAL REDNESS RELIEF [Suspect]
     Active Substance: TETRAHYDROZOLINE HYDROCHLORIDE
     Route: 065

REACTIONS (1)
  - Drug ineffective [Unknown]
